FAERS Safety Report 25022230 (Version 1)
Quarter: 2025Q1

REPORT INFORMATION
  Report Type: Spontaneous
  Country: US (occurrence: US)
  Receive Date: 20250228
  Receipt Date: 20250228
  Transmission Date: 20250409
  Serious: No
  Sender: ROCHE
  Company Number: US-ROCHE-10000211993

PATIENT
  Sex: Female

DRUGS (3)
  1. XOLAIR PFS [Suspect]
     Active Substance: OMALIZUMAB
     Indication: Urticaria
     Dosage: ONGOING
     Route: 058
     Dates: start: 202410
  2. XOLAIR PFS [Suspect]
     Active Substance: OMALIZUMAB
     Indication: Urticaria
  3. DUPIXENT [Concomitant]
     Active Substance: DUPILUMAB

REACTIONS (1)
  - Urticaria [Unknown]
